FAERS Safety Report 12133099 (Version 3)
Quarter: 2016Q2

REPORT INFORMATION
  Report Type: Spontaneous
  Country: PT (occurrence: PT)
  Receive Date: 20160301
  Receipt Date: 20160414
  Transmission Date: 20160815
  Serious: Yes (Other)
  Sender: FDA-Public Use
  Company Number: PT-SA-2016SA020045

PATIENT
  Age: 50 Year
  Sex: Female

DRUGS (5)
  1. AUBAGIO [Suspect]
     Active Substance: TERIFLUNOMIDE
     Indication: MULTIPLE SCLEROSIS
     Route: 065
     Dates: start: 20160129, end: 20160202
  2. AMITRIPTYLINE [Concomitant]
     Active Substance: AMITRIPTYLINE
     Indication: TENSION HEADACHE
     Route: 048
     Dates: start: 2010
  3. AUBAGIO [Suspect]
     Active Substance: TERIFLUNOMIDE
     Indication: MULTIPLE SCLEROSIS
     Route: 048
     Dates: start: 20151030, end: 20160119
  4. MERCILON [Concomitant]
     Active Substance: DESOGESTREL\ETHINYL ESTRADIOL
     Indication: CONTRACEPTION
     Route: 048
     Dates: start: 2010
  5. SPASMOPLEX [Concomitant]
     Active Substance: TROSPIUM CHLORIDE
     Indication: NEUROGENIC BLADDER
     Route: 048
     Dates: start: 20160108

REACTIONS (5)
  - Rash pruritic [Recovered/Resolved]
  - Toxic skin eruption [Recovered/Resolved]
  - Skin reaction [Unknown]
  - Rash erythematous [Recovered/Resolved]
  - Rash [Recovered/Resolved]

NARRATIVE: CASE EVENT DATE: 20151230
